FAERS Safety Report 11079553 (Version 2)
Quarter: 2015Q2

REPORT INFORMATION
  Report Type: Spontaneous
  Country: US (occurrence: US)
  Receive Date: 20150430
  Receipt Date: 20150629
  Transmission Date: 20150821
  Serious: Yes (Death, Hospitalization)
  Sender: FDA-Public Use
  Company Number: US-PFIZER INC-2015144233

PATIENT
  Age: 85 Year
  Sex: Female
  Weight: 82 kg

DRUGS (2)
  1. REVATIO [Suspect]
     Active Substance: SILDENAFIL CITRATE
     Indication: LUNG DISORDER
  2. REVATIO [Suspect]
     Active Substance: SILDENAFIL CITRATE
     Indication: CARDIAC DISORDER
     Dosage: 20 MG, 3X/DAY

REACTIONS (5)
  - Cardiac disorder [Fatal]
  - Weight decreased [Unknown]
  - Hypocoagulable state [Unknown]
  - Joint effusion [Unknown]
  - Pain [Unknown]
